FAERS Safety Report 7451758-9 (Version None)
Quarter: 2011Q2

REPORT INFORMATION
  Report Type: 
  Country: None (occurrence: None)
  Receive Date: 20110502
  Receipt Date: 20110426
  Transmission Date: 20111010
  Serious: Yes (Other)
  Sender: FDA-Public Use
  Company Number: JP-PFIZER INC-2011089135

PATIENT
  Age: 59 Year
  Sex: Male

DRUGS (3)
  1. LYRICA [Suspect]
     Indication: NEURALGIA
     Dosage: 75 MG/DAY
     Route: 048
     Dates: start: 20110331, end: 20110414
  2. BASEN [Concomitant]
     Indication: DIABETES MELLITUS
     Dosage: 0.3 MG, 3X/DAY
     Route: 048
     Dates: start: 20110331
  3. SITAGLIPTIN PHOSPHATE [Concomitant]
     Indication: DIABETES MELLITUS
     Dosage: 50 MG/DAY
     Route: 048
     Dates: start: 20110331

REACTIONS (1)
  - TENOSYNOVITIS [None]
